FAERS Safety Report 8614871-6 (Version None)
Quarter: 2012Q3

REPORT INFORMATION
  Report Type: 
  Country: None (occurrence: None)
  Receive Date: 20120823
  Receipt Date: 20120711
  Transmission Date: 20120928
  Serious: No
  Sender: FDA-Public Use
  Company Number: US-BRISTOL-MYERS SQUIBB COMPANY-16670986

PATIENT
  Age: 71 Year
  Sex: Male

DRUGS (1)
  1. KOMBIGLYZE XR [Suspect]
     Dosage: FORMULATION:KOMBIGLYZE XR TABLET 2.5MG/1000MG.REFILLED IN JAN2012 FOR 90 DAYS.

REACTIONS (1)
  - BLOOD GLUCOSE ABNORMAL [None]
